FAERS Safety Report 6349313-7 (Version None)
Quarter: 2009Q3

REPORT INFORMATION
  Report Type: 
  Country: None (occurrence: None)
  Receive Date: 20090911
  Receipt Date: 20090831
  Transmission Date: 20100115
  Serious: Yes (Hospitalization, Congenital Anomaly)
  Sender: FDA-Public Use
  Company Number: B0590721B

PATIENT
  Sex: Male
  Weight: 1.8 kg

DRUGS (5)
  1. LAMICTAL [Suspect]
     Indication: EPILEPSY
  2. EPITOMAX [Suspect]
     Indication: EPILEPSY
  3. MIRENA [Suspect]
  4. TEGRETOL [Suspect]
     Indication: EPILEPSY
  5. URBANYL [Suspect]
     Indication: EPILEPSY

REACTIONS (6)
  - CEREBRAL HAEMORRHAGE [None]
  - CONGENITAL TORTICOLLIS [None]
  - DRUG EXPOSURE DURING PREGNANCY [None]
  - HYPERTONIA [None]
  - PLAGIOCEPHALY [None]
  - PREMATURE BABY [None]
